FAERS Safety Report 5074864-5 (Version None)
Quarter: 2006Q3

REPORT INFORMATION
  Report Type: 
  Country: None (occurrence: None)
  Receive Date: 20060717
  Receipt Date: 20060221
  Transmission Date: 20061208
  Serious: Yes (Disabling)
  Sender: FDA-Public Use
  Company Number: 2006000417

PATIENT
  Age: 60 Year
  Sex: Male

DRUGS (2)
  1. TARCEVA [Suspect]
     Indication: NON-SMALL CELL LUNG CANCER
     Dosage: SEE IMAGE
     Route: 048
     Dates: start: 20051201
  2. TARCEVA [Suspect]
     Indication: NON-SMALL CELL LUNG CANCER
     Dosage: SEE IMAGE
     Route: 048
     Dates: start: 20051228

REACTIONS (2)
  - OEDEMA PERIPHERAL [None]
  - RASH [None]
